FAERS Safety Report 17249592 (Version 3)
Quarter: 2020Q1

REPORT INFORMATION
  Report Type: Spontaneous
  Country: US (occurrence: US)
  Receive Date: 20200108
  Receipt Date: 20200226
  Transmission Date: 20200409
  Serious: Yes (Hospitalization, Other)
  Sender: FDA-Public Use
  Company Number: US-BRISTOL-MYERS SQUIBB COMPANY-BMS-2020-001204

PATIENT
  Age: 51 Year
  Sex: Male

DRUGS (1)
  1. ELIQUIS [Suspect]
     Active Substance: APIXABAN
     Indication: CARDIAC FAILURE
     Dosage: UNK, BID
     Route: 065

REACTIONS (3)
  - Splenic infarction [Recovered/Resolved]
  - Intentional product use issue [Unknown]
  - Hypokalaemia [Recovered/Resolved]
